FAERS Safety Report 24790164 (Version 2)
Quarter: 2025Q1

REPORT INFORMATION
  Report Type: Spontaneous
  Country: JP (occurrence: JP)
  Receive Date: 20241230
  Receipt Date: 20250107
  Transmission Date: 20250409
  Serious: Yes (Death, Other)
  Sender: BRISTOL-MYERS SQUIBB COMPANY
  Company Number: JP-BRISTOL-MYERS SQUIBB COMPANY-2024-200079

PATIENT
  Age: 78 Year
  Sex: Male

DRUGS (1)
  1. VIDAZA [Suspect]
     Active Substance: AZACITIDINE
     Indication: Chronic myelomonocytic leukaemia
     Route: 042

REACTIONS (13)
  - Tremor [Unknown]
  - Carotid artery stenosis [Unknown]
  - Hemiplegia [Unknown]
  - Cerebral haemorrhage [Unknown]
  - Cerebral hyperperfusion syndrome [Unknown]
  - Respiratory failure [Fatal]
  - Blood pressure decreased [Unknown]
  - White blood cell count decreased [Unknown]
  - Haemoglobin decreased [Unknown]
  - Infection [Unknown]
  - Stenotrophomonas test positive [Unknown]
  - Staphylococcus test positive [Unknown]
  - Candida test positive [Unknown]
